FAERS Safety Report 10069403 (Version 2)
Quarter: 2014Q2

REPORT INFORMATION
  Report Type: Spontaneous
  Country: US (occurrence: US)
  Receive Date: 20140410
  Receipt Date: 20140603
  Transmission Date: 20141212
  Serious: No
  Sender: FDA-Public Use
  Company Number: US-009507513-1403USA013217

PATIENT
  Sex: Male

DRUGS (1)
  1. NASONEX [Suspect]
     Dosage: 50MCG/ONE SPRAY IN EACH NOSTRIL ONCE DAILY
     Route: 045
     Dates: start: 20140321

REACTIONS (3)
  - Incorrect dose administered [Unknown]
  - Product container issue [Unknown]
  - No adverse event [Unknown]
